FAERS Safety Report 14526009 (Version 12)
Quarter: 2018Q2

REPORT INFORMATION
  Report Type: Report from Study
  Country: JP (occurrence: JP)
  Receive Date: 20180213
  Receipt Date: 20180530
  Transmission Date: 20180711
  Serious: Yes (Hospitalization)
  Sender: FDA-Public Use
  Company Number: JP-ROCHE-2070125

PATIENT
  Age: 69 Year
  Sex: Male
  Weight: 65.9 kg

DRUGS (5)
  1. HALCION [Concomitant]
     Active Substance: TRIAZOLAM
     Route: 048
  2. MAGMITT [Concomitant]
     Active Substance: MAGNESIUM OXIDE
     Route: 067
  3. XYZAL [Concomitant]
     Active Substance: LEVOCETIRIZINE DIHYDROCHLORIDE
     Route: 048
  4. MONTELUKAST [Concomitant]
     Active Substance: MONTELUKAST SODIUM
     Route: 048
  5. ATEZOLIZUMAB. [Suspect]
     Active Substance: ATEZOLIZUMAB
     Indication: RENAL CELL CARCINOMA
     Dosage: FOR 16 CYCLES (EACH CYCLE OF 21 DAYS) OR 1 YEAR (WHICHEVER OCCURS FIRST) (AS PER PROTOCOL).?DATE OF
     Route: 042
     Dates: start: 20171226

REACTIONS (1)
  - Polymyositis [Not Recovered/Not Resolved]

NARRATIVE: CASE EVENT DATE: 20180130
